FAERS Safety Report 26147291 (Version 1)
Quarter: 2025Q4

REPORT INFORMATION
  Report Type: Spontaneous
  Country: RS (occurrence: RS)
  Receive Date: 20251211
  Receipt Date: 20251211
  Transmission Date: 20260118
  Serious: Yes (Other)
  Sender: NOVO NORDISK
  Company Number: RS-NOVOPROD-1575415

PATIENT
  Age: 14 Year
  Sex: Male
  Weight: 87 kg

DRUGS (3)
  1. NOVORAPID [Suspect]
     Active Substance: INSULIN ASPART
     Indication: Type 1 diabetes mellitus
     Dosage: 6 IU TO 14 IU TID
     Route: 058
  2. NOVORAPID [Suspect]
     Active Substance: INSULIN ASPART
     Dosage: 12 IU, QD (WITH EVERY MEAL)
     Route: 058
  3. TOUJEO [Concomitant]
     Active Substance: INSULIN GLARGINE
     Indication: Type 1 diabetes mellitus
     Dosage: 30 IU, QD (IN THE EVENING)
     Route: 058

REACTIONS (2)
  - Hyperglycaemia [Recovered/Resolved]
  - Product quality issue [Unknown]
